FAERS Safety Report 6032496-6 (Version None)
Quarter: 2009Q1

REPORT INFORMATION
  Report Type: 
  Country: None (occurrence: None)
  Receive Date: 20090109
  Receipt Date: 20081110
  Transmission Date: 20090719
  Serious: No
  Sender: FDA-Public Use
  Company Number: A0750467A

PATIENT
  Age: 56 Year
  Sex: Female

DRUGS (6)
  1. TYKERB [Suspect]
     Indication: BREAST CANCER
     Dosage: 5TAB PER DAY
     Route: 048
     Dates: start: 20080919
  2. XELODA [Concomitant]
  3. KEPPRA [Concomitant]
  4. LEVOTHYROXINE SODIUM [Concomitant]
  5. DECADRON [Concomitant]
  6. GABAPENTIN [Concomitant]

REACTIONS (4)
  - DEHYDRATION [None]
  - DIARRHOEA [None]
  - HEART RATE INCREASED [None]
  - IMMUNODEFICIENCY [None]
